FAERS Safety Report 17554303 (Version 1)
Quarter: 2020Q1

REPORT INFORMATION
  Report Type: Spontaneous
  Country: CA (occurrence: CA)
  Receive Date: 20200318
  Receipt Date: 20200318
  Transmission Date: 20200409
  Serious: Yes (Other)
  Sender: FDA-Public Use
  Company Number: CA-TEVA-2020-CA-1205073

PATIENT
  Age: 76 Year
  Sex: Female

DRUGS (3)
  1. XELJANZ [Concomitant]
     Active Substance: TOFACITINIB CITRATE
     Indication: PSORIATIC ARTHROPATHY
     Dosage: 10 MILLIGRAM DAILY;
     Route: 048
  2. METHOTREXATE. [Suspect]
     Active Substance: METHOTREXATE
     Indication: PSORIATIC ARTHROPATHY
     Route: 058
  3. METHOTREXATE. [Suspect]
     Active Substance: METHOTREXATE
     Indication: PSORIATIC ARTHROPATHY
     Route: 048

REACTIONS (5)
  - Traumatic lung injury [Unknown]
  - Contraindicated product administered [Unknown]
  - Product use issue [Unknown]
  - Off label use [Unknown]
  - Interstitial lung disease [Unknown]
